FAERS Safety Report 9137431 (Version 2)
Quarter: 2013Q2

REPORT INFORMATION
  Report Type: Spontaneous
  Country: NO (occurrence: NO)
  Receive Date: 20130304
  Receipt Date: 20130429
  Transmission Date: 20140414
  Serious: Yes (Other)
  Sender: FDA-Public Use
  Company Number: PHHY2012NO107718

PATIENT
  Age: 42 Year
  Sex: Female

DRUGS (1)
  1. GILENYA [Suspect]
     Indication: MULTIPLE SCLEROSIS
     Dosage: 0.5 MG, QD
     Route: 048
     Dates: start: 20111129, end: 20120920

REACTIONS (6)
  - Central nervous system lesion [Unknown]
  - Herpes zoster oticus [Recovered/Resolved with Sequelae]
  - Herpes zoster [Recovered/Resolved with Sequelae]
  - VIIth nerve paralysis [Recovered/Resolved with Sequelae]
  - Facial pain [Unknown]
  - Rash [Unknown]
